FAERS Safety Report 6108489-7 (Version None)
Quarter: 2009Q1

REPORT INFORMATION
  Report Type: 
  Country: None (occurrence: None)
  Receive Date: 20090309
  Receipt Date: 20090304
  Transmission Date: 20090719
  Serious: No
  Sender: FDA-Public Use
  Company Number: US-B.I. PHARMACEUTICALS,INC./RIDGEFIELD-2009-BP-02691BP

PATIENT
  Sex: Female

DRUGS (7)
  1. ZANTAC 150 [Suspect]
     Indication: DYSPEPSIA
     Dosage: 300MG
     Route: 048
     Dates: start: 20090301
  2. NORVASC [Concomitant]
     Indication: HYPERTENSION
     Dosage: 150MG
     Route: 048
  3. LISINOPRIL [Concomitant]
     Indication: HYPERTENSION
     Dosage: 20MG
     Route: 048
  4. SYNTHROID [Concomitant]
     Indication: HYPOTHYROIDISM
     Dosage: .75MG
     Route: 048
  5. VALTREX [Concomitant]
     Indication: HERPES ZOSTER
     Dosage: 500MG
     Route: 048
  6. TRICOR [Concomitant]
     Indication: BLOOD CHOLESTEROL INCREASED
     Dosage: 145MG
     Route: 048
  7. DITROPAN [Concomitant]
     Indication: HYPERTONIC BLADDER
     Dosage: 10MG
     Route: 048

REACTIONS (1)
  - DRUG INEFFECTIVE [None]
